FAERS Safety Report 7538751-2 (Version None)
Quarter: 2011Q2

REPORT INFORMATION
  Report Type: 
  Country: None (occurrence: None)
  Receive Date: 20110610
  Receipt Date: 20110607
  Transmission Date: 20111010
  Serious: No
  Sender: FDA-Public Use
  Company Number: US-PFIZER INC-2011123807

PATIENT
  Sex: Female
  Weight: 54.422 kg

DRUGS (11)
  1. TIMOLOL MALEATE [Concomitant]
     Indication: GLAUCOMA
     Dosage: 1 GTT, DAILY
  2. REMERON [Concomitant]
     Dosage: 7.5 MG, DAILY
  3. LEXAPRO [Concomitant]
     Dosage: DAILY
  4. CLONAZEPAM [Concomitant]
     Dosage: 0.25 MG, DAILY
  5. CALCIUM CITRATE [Concomitant]
     Dosage: UNK
  6. NEURONTIN [Concomitant]
     Dosage: 300MG THEN 600 MG, DAILY
  7. ADVIL LIQUI-GELS [Suspect]
     Indication: BACK PAIN
     Dosage: 400 MG, 3X/DAY
     Route: 048
     Dates: start: 20110602
  8. TRAVATAN [Concomitant]
     Indication: GLAUCOMA
     Dosage: 1 GTT, DAILY
  9. VITAMIN D [Concomitant]
     Dosage: 2000 IU, DAILY
  10. CENTRUM SILVER [Concomitant]
     Dosage: DAILY
  11. TENORMIN [Concomitant]
     Indication: HYPERTENSION
     Dosage: 15 MG, DAILY
     Dates: start: 20110101

REACTIONS (1)
  - DRUG INEFFECTIVE [None]
